FAERS Safety Report 8924498 (Version 1)
Quarter: 2012Q4

REPORT INFORMATION
  Report Type: 
  Country: CA (occurrence: CA)
  Receive Date: 20121127
  Receipt Date: 20121127
  Transmission Date: 20130627
  Serious: Yes (Other)
  Sender: FDA-Public Use
  Company Number: CA-AMGEN-CANSP2012074487

PATIENT
  Age: 75 Year
  Sex: Female

DRUGS (3)
  1. ENBREL [Suspect]
     Indication: RHEUMATOID ARTHRITIS
     Dosage: UNK
     Dates: start: 20120720, end: 20121003
  2. CELEBREX [Concomitant]
     Dosage: UNK
  3. HUMIRA [Concomitant]

REACTIONS (4)
  - Disturbance in attention [Recovered/Resolved]
  - Dizziness [Recovered/Resolved]
  - Paraesthesia [Recovered/Resolved]
  - Palpitations [Recovered/Resolved]
